FAERS Safety Report 15566408 (Version 1)
Quarter: 2018Q4

REPORT INFORMATION
  Report Type: Spontaneous
  Country: US (occurrence: US)
  Receive Date: 20181025
  Receipt Date: 20181025
  Transmission Date: 20190205
  Serious: Yes (Death, Hospitalization)
  Sender: FDA-Public Use
  Company Number: None

PATIENT
  Age: 61 Year
  Sex: Female
  Weight: 56 kg

DRUGS (1)
  1. NEULASTA [Suspect]
     Active Substance: PEGFILGRASTIM
     Dates: end: 20180927

REACTIONS (6)
  - Hypovolaemia [None]
  - Transfusion [None]
  - Gastrointestinal haemorrhage [None]
  - Mental status changes [None]
  - Platelet transfusion [None]
  - Pyrexia [None]

NARRATIVE: CASE EVENT DATE: 20181002
